FAERS Safety Report 8045002-1 (Version None)
Quarter: 2012Q1

REPORT INFORMATION
  Report Type: 
  Country: None (occurrence: None)
  Receive Date: 20120113
  Receipt Date: 20120103
  Transmission Date: 20120608
  Serious: Yes (Other)
  Sender: FDA-Public Use
  Company Number: PHHY2010US11420

PATIENT
  Sex: Female
  Weight: 71 kg

DRUGS (18)
  1. VASOTEC [Concomitant]
  2. ASPIRIN [Concomitant]
  3. HYDROCHLOROTHIAZIDE [Concomitant]
  4. ZOCOR [Concomitant]
  5. NORVASC [Concomitant]
  6. GLEEVEC [Suspect]
     Indication: LEUKAEMIA
     Dosage: 400 MG, QD
     Route: 048
     Dates: start: 20070517
  7. GLEEVEC [Suspect]
     Dosage: 400 MG, DAILY
     Route: 048
     Dates: start: 20091001
  8. IRON [Concomitant]
  9. INSULIN [Concomitant]
  10. COLACE [Concomitant]
  11. PEPCID [Concomitant]
  12. RANEXA [Concomitant]
  13. NOVOLIN 70/30 [Concomitant]
  14. NITROGLYCERIN [Concomitant]
  15. POTASSIUM CHLORIDE [Concomitant]
  16. LORTAB [Concomitant]
  17. ATENOLOL [Concomitant]
  18. IMDUR [Concomitant]

REACTIONS (8)
  - NAUSEA [None]
  - HAEMORRHOIDS [None]
  - HAEMATOCHEZIA [None]
  - MUSCLE SPASMS [None]
  - MYALGIA [None]
  - WEIGHT INCREASED [None]
  - DIARRHOEA [None]
  - FATIGUE [None]
